FAERS Safety Report 4648138-8 (Version None)
Quarter: 2005Q2

REPORT INFORMATION
  Report Type: 
  Country: None (occurrence: None)
  Receive Date: 20050331
  Receipt Date: 20041213
  Transmission Date: 20051028
  Serious: No
  Sender: FDA-Public Use
  Company Number: 04P-163-0283074-00

PATIENT
  Age: 65 Year
  Sex: Female
  Weight: 58.0604 kg

DRUGS (8)
  1. HUMIRA [Suspect]
     Indication: RHEUMATOID ARTHRITIS
     Dosage: 40 MG, 1 IN 2 WK, SUBCUTANEOUS
     Route: 058
     Dates: start: 20040903
  2. LEFLUNOMIDE [Concomitant]
  3. PREDNISONE TAB [Concomitant]
  4. TOCOPHEROL CONCENTRATE CAP [Concomitant]
  5. ATORVASTATIN [Concomitant]
  6. ALENDRONATE SODIUM [Concomitant]
  7. MULTI-VITAMINS [Concomitant]
  8. CALCIUM GLUCONATE [Concomitant]

REACTIONS (3)
  - BLEPHARITIS [None]
  - RASH ERYTHEMATOUS [None]
  - URTICARIA [None]
